FAERS Safety Report 5787580-9 (Version None)
Quarter: 2008Q2

REPORT INFORMATION
  Report Type: 
  Country: None (occurrence: None)
  Receive Date: 20080623
  Receipt Date: 20080616
  Transmission Date: 20081010
  Serious: Yes (Death)
  Sender: FDA-Public Use
  Company Number: 163-21880-08051595

PATIENT
  Age: 83 Year
  Sex: Male

DRUGS (10)
  1. REVLIMID [Suspect]
     Indication: MULTIPLE MYELOMA
     Dosage: 25 MG, 1 IN 1 D, ORAL
     Route: 048
     Dates: start: 20080514, end: 20080526
  2. AMBIEN [Concomitant]
  3. PROSCAR [Concomitant]
  4. PERCOCET [Concomitant]
  5. LORTAB [Concomitant]
  6. NORVASC [Concomitant]
  7. PROLIXIN [Concomitant]
  8. ZOCOR [Concomitant]
  9. TRICOR [Concomitant]
  10. COUMADIN [Concomitant]

REACTIONS (2)
  - MALIGNANT NEOPLASM PROGRESSION [None]
  - MULTIPLE MYELOMA [None]
